FAERS Safety Report 4652207-6 (Version None)
Quarter: 2005Q2

REPORT INFORMATION
  Report Type: 
  Country: None (occurrence: None)
  Receive Date: 20050502
  Receipt Date: 20050422
  Transmission Date: 20051028
  Serious: No
  Sender: FDA-Public Use
  Company Number: 2005AP02494

PATIENT
  Sex: Female

DRUGS (2)
  1. ARIMIDEX [Suspect]
     Indication: BREAST CANCER
     Dosage: 1 MG DAILY PO
     Route: 048
  2. GASTER [Concomitant]

REACTIONS (5)
  - MALAISE [None]
  - PHARYNGOLARYNGEAL PAIN [None]
  - PYREXIA [None]
  - RETINAL HAEMORRHAGE [None]
  - STEVENS-JOHNSON SYNDROME [None]
